FAERS Safety Report 9351749 (Version 1)
Quarter: 2013Q2

REPORT INFORMATION
  Report Type: Spontaneous
  Country: US (occurrence: US)
  Receive Date: 20130617
  Receipt Date: 20130617
  Transmission Date: 20140414
  Serious: Yes (Other)
  Sender: FDA-Public Use
  Company Number: US-PFIZER INC-2013176157

PATIENT
  Sex: Female

DRUGS (5)
  1. XALATAN [Suspect]
     Dosage: UNK
  2. XALATAN [Suspect]
     Dosage: ONE DROP THREE TIMES PER DAY
  3. AZOPT [Suspect]
     Dosage: UNK
  4. AZOPT [Suspect]
     Dosage: ONE DROP THREE TIMES PER DAY
  5. SYNTHROID [Concomitant]
     Dosage: UNK

REACTIONS (3)
  - Intraocular pressure increased [Unknown]
  - Asthenopia [Unknown]
  - Off label use [Unknown]
